FAERS Safety Report 14896576 (Version 1)
Quarter: 2018Q2

REPORT INFORMATION
  Report Type: Spontaneous
  Country: BR (occurrence: BR)
  Receive Date: 20180515
  Receipt Date: 20180515
  Transmission Date: 20180711
  Serious: Yes (Other)
  Sender: FDA-Public Use
  Company Number: PHHY2018BR003126

PATIENT
  Sex: Female

DRUGS (4)
  1. ALPRAZOLAM. [Suspect]
     Active Substance: ALPRAZOLAM
     Indication: PRODUCT USED FOR UNKNOWN INDICATION
     Dosage: UNK
     Route: 065
  2. OLCADIL [Suspect]
     Active Substance: CLOXAZOLAM
     Indication: ANXIETY
     Dosage: 1 DF, BID
     Route: 048
     Dates: start: 2007
  3. OLCADIL [Suspect]
     Active Substance: CLOXAZOLAM
     Indication: OBSESSIVE-COMPULSIVE DISORDER
  4. OLCADIL [Suspect]
     Active Substance: CLOXAZOLAM
     Indication: PANIC DISORDER

REACTIONS (5)
  - Panic disorder [Unknown]
  - Depressed mood [Unknown]
  - Cystocele [Unknown]
  - Fear [Unknown]
  - Anxiety [Unknown]
